FAERS Safety Report 8789261 (Version 1)
Quarter: 2012Q4

REPORT INFORMATION
  Report Type: Spontaneous
  Country: US (occurrence: None)
  Receive Date: 20120910
  Receipt Date: 20120910
  Transmission Date: 20130627
  Serious: Yes (Hospitalization)
  Sender: FDA-Public Use
  Company Number: None

PATIENT
  Age: 64 Year
  Sex: Female
  Weight: 103.4 kg

DRUGS (1)
  1. NITROFURANTOIN [Suspect]
     Route: 048

REACTIONS (2)
  - Hepatitis cholestatic [None]
  - Drug-induced liver injury [None]
